FAERS Safety Report 15622779 (Version 2)
Quarter: 2018Q4

REPORT INFORMATION
  Report Type: Report from Study
  Country: None (occurrence: US)
  Receive Date: 20181115
  Receipt Date: 20181121
  Transmission Date: 20190205
  Serious: Yes (Other)
  Sender: FDA-Public Use
  Company Number: US-ABBVIE-18K-163-2549189-00

PATIENT
  Age: 47 Year
  Sex: Male
  Weight: 72.64 kg

DRUGS (3)
  1. HUMIRA [Suspect]
     Active Substance: ADALIMUMAB
     Indication: PSORIASIS
     Route: 058
     Dates: start: 2016, end: 20181016
  2. LISINOPRIL. [Concomitant]
     Active Substance: LISINOPRIL
     Indication: HYPERTENSION
  3. HUMIRA [Suspect]
     Active Substance: ADALIMUMAB
     Route: 058
     Dates: start: 2018, end: 2018

REACTIONS (11)
  - Migraine without aura [Unknown]
  - Pain [Unknown]
  - Ear pain [Unknown]
  - Dysphemia [Unknown]
  - Otitis media [Recovered/Resolved]
  - Malaise [Unknown]
  - Hypoacusis [Unknown]
  - Nasopharyngitis [Unknown]
  - Deafness [Recovering/Resolving]
  - Head discomfort [Unknown]
  - Vertigo [Recovered/Resolved]

NARRATIVE: CASE EVENT DATE: 20181016
